FAERS Safety Report 16111603 (Version 1)
Quarter: 2019Q1

REPORT INFORMATION
  Report Type: Spontaneous
  Country: JP (occurrence: JP)
  Receive Date: 20190325
  Receipt Date: 20190325
  Transmission Date: 20190418
  Serious: Yes (Other)
  Sender: FDA-Public Use
  Company Number: JP-GLAXOSMITHKLINE-JP2019JPN050152

PATIENT
  Age: 72 Year
  Sex: Female

DRUGS (9)
  1. SERETIDE [Suspect]
     Active Substance: FLUTICASONE PROPIONATE\SALMETEROL XINAFOATE
     Dosage: UNK
     Route: 055
     Dates: start: 20190305
  2. MUCOSTA [Concomitant]
     Active Substance: REBAMIPIDE
  3. LIPITOR [Concomitant]
     Active Substance: ATORVASTATIN CALCIUM
  4. EVOXAC [Concomitant]
     Active Substance: CEVIMELINE HYDROCHLORIDE
  5. GASMOTIN [Concomitant]
     Active Substance: MOSAPRIDE CITRATE
  6. MAGNESIUM OXIDE. [Concomitant]
     Active Substance: MAGNESIUM OXIDE
  7. ACINON [Concomitant]
     Active Substance: NIZATIDINE
  8. EDIROL [Concomitant]
     Active Substance: ELDECALCITOL
  9. METHYCOBAL [Concomitant]
     Active Substance: METHYLCOBALAMIN

REACTIONS (2)
  - Conjunctival haemorrhage [Unknown]
  - Blood pressure increased [Unknown]

NARRATIVE: CASE EVENT DATE: 201903
